FAERS Safety Report 9592387 (Version 1)
Quarter: 2013Q3

REPORT INFORMATION
  Report Type: Spontaneous
  Country: US (occurrence: None)
  Receive Date: 20130930
  Receipt Date: 20130930
  Transmission Date: 20140515
  Serious: Yes (Other)
  Sender: FDA-Public Use
  Company Number: 1000046945

PATIENT
  Age: 56 Year
  Sex: Female

DRUGS (3)
  1. LINZESS [Suspect]
     Indication: CONSTIPATION
     Dosage: 145MCG (145 MCG 1 IN 1)
     Dates: start: 20130713, end: 20130714
  2. PAXIL (PAROXETINE) (PAROXETINE) [Concomitant]
  3. WARFARIN (WARFARIN) (WARFARIN) [Concomitant]

REACTIONS (2)
  - Diarrhoea [None]
  - Abdominal pain [None]
